FAERS Safety Report 9455860 (Version 2)
Quarter: 2013Q4

REPORT INFORMATION
  Report Type: Report from Study
  Country: BR (occurrence: BR)
  Receive Date: 20130813
  Receipt Date: 20131204
  Transmission Date: 20140711
  Serious: Yes (Death, Hospitalization)
  Sender: FDA-Public Use
  Company Number: BR-US-EMD SERONO, INC.-7229360

PATIENT
  Age: 59 Year
  Sex: Female

DRUGS (9)
  1. REBIF [Suspect]
     Indication: MULTIPLE SCLEROSIS
     Route: 058
     Dates: start: 20030212
  2. FLUOXETINE [Concomitant]
     Indication: DEPRESSED MOOD
  3. CIPROFIBRATE [Concomitant]
     Indication: BLOOD TRIGLYCERIDES INCREASED
  4. GLIMEPIRIDE [Concomitant]
     Indication: DIABETES MELLITUS
  5. FOLIC ACID [Concomitant]
     Indication: PRODUCT USED FOR UNKNOWN INDICATION
  6. ENALAPRIL [Concomitant]
     Indication: HYPERTENSION
  7. ATENOLOL [Concomitant]
     Indication: HYPERTENSION
  8. AMLODIPINE [Concomitant]
     Indication: HYPERTENSION
  9. PENTOXIFYLLINE [Concomitant]
     Indication: PRODUCT USED FOR UNKNOWN INDICATION

REACTIONS (3)
  - Pneumonia [Fatal]
  - Septic shock [Fatal]
  - Renal failure [Fatal]
